FAERS Safety Report 5167952-6 (Version None)
Quarter: 2006Q4

REPORT INFORMATION
  Report Type: 
  Country: None (occurrence: None)
  Receive Date: 20061208
  Receipt Date: 20051111
  Transmission Date: 20070319
  Serious: No
  Sender: FDA-Public Use
  Company Number: US-GLAXOSMITHKLINE-A0581935A

PATIENT
  Age: 51 Year
  Sex: Female

DRUGS (6)
  1. AVANDAMET [Suspect]
     Dosage: 4MG TWICE PER DAY
     Route: 048
     Dates: start: 20040501
  2. GLIPIZIDE [Concomitant]
  3. MULTI-VITAMIN [Concomitant]
  4. DYAZIDE [Concomitant]
  5. PROTONIX [Concomitant]
  6. VITAMIN E [Concomitant]

REACTIONS (2)
  - FLUID RETENTION [None]
  - HEADACHE [None]
